FAERS Safety Report 10235227 (Version 1)
Quarter: 2014Q2

REPORT INFORMATION
  Report Type: Spontaneous
  Country: GB (occurrence: GB)
  Receive Date: 20140613
  Receipt Date: 20140613
  Transmission Date: 20141212
  Serious: Yes (Hospitalization)
  Sender: FDA-Public Use
  Company Number: GB-UCBSA-2014000631

PATIENT
  Age: 61 Year
  Sex: Female

DRUGS (12)
  1. ISOSORBIDE MONONITRATE [Suspect]
     Indication: ANGINA PECTORIS
     Dosage: 60 MG, UNK
     Route: 048
     Dates: end: 20140321
  2. CYCLIZINE [Concomitant]
     Dosage: DOSE UNKNOWN
  3. DOMPERIDONE [Concomitant]
     Dosage: DOSE UNKNOWN
  4. GLYCERYL TRINITRATE [Concomitant]
     Dosage: DOSE UNKNOWN
  5. LACTULOSE [Concomitant]
     Dosage: DOSE UNKNOWN
  6. LANSOPRAZOLE [Concomitant]
     Dosage: DOSE UNKNOWN
  7. LEVOTHYROXINE SODIUM [Concomitant]
     Dosage: DOSE UNKNOWN
  8. MORPHINE SULPHATE [Concomitant]
     Dosage: DOSE UNKNOWN
  9. PARACETAMOL [Concomitant]
     Dosage: DOSE UNKNOWN
  10. ACIDEX [Concomitant]
     Dosage: DOSE UNKNOWN
  11. SALBUTAMOL [Concomitant]
     Dosage: DOSE UNKNOWN
  12. VERAPAMIL [Concomitant]
     Dosage: DOSE UNKNOWN

REACTIONS (2)
  - Dizziness [Recovering/Resolving]
  - Fall [Unknown]
